FAERS Safety Report 6671631-3 (Version None)
Quarter: 2010Q2

REPORT INFORMATION
  Report Type: 
  Country: None (occurrence: None)
  Receive Date: 20100406
  Receipt Date: 20100406
  Transmission Date: 20101027
  Serious: Yes (Life-Threatening, Hospitalization, Other)
  Sender: FDA-Public Use
  Company Number: None

PATIENT
  Age: 38 Year
  Sex: Male
  Weight: 83.9154 kg

DRUGS (1)
  1. LEVETIRACETAM [Suspect]
     Indication: CONVULSION
     Dosage: 750 BID ORAL/047
     Route: 048
     Dates: start: 20090203

REACTIONS (5)
  - AGGRESSION [None]
  - AMNESIA [None]
  - DEPRESSION [None]
  - SUICIDE ATTEMPT [None]
  - THINKING ABNORMAL [None]
